FAERS Safety Report 8758461 (Version 1)
Quarter: 2012Q4

REPORT INFORMATION
  Report Type: 
  Country: CL (occurrence: CL)
  Receive Date: 20120829
  Receipt Date: 20120829
  Transmission Date: 20130627
  Serious: Yes (Other)
  Sender: FDA-Public Use
  Company Number: CL-UCBSA-064296

PATIENT
  Age: 30 Year
  Sex: Male

DRUGS (1)
  1. KEPPRA [Suspect]
     Route: 048
     Dates: end: 2012

REACTIONS (1)
  - Renal impairment [Recovering/Resolving]
